FAERS Safety Report 10841170 (Version 1)
Quarter: 2015Q1

REPORT INFORMATION
  Report Type: Spontaneous
  Country: US (occurrence: US)
  Receive Date: 20150220
  Receipt Date: 20150220
  Transmission Date: 20150721
  Serious: No
  Sender: FDA-Public Use
  Company Number: US-ABBVIE-14P-163-1233662-00

PATIENT
  Age: 55 Year
  Sex: Female
  Weight: 79.9 kg

DRUGS (3)
  1. HUMIRA [Suspect]
     Active Substance: ADALIMUMAB
     Indication: RHEUMATOID ARTHRITIS
     Route: 058
     Dates: start: 201403
  2. METHOTREXATE [Concomitant]
     Active Substance: METHOTREXATE
     Indication: RHEUMATOID ARTHRITIS
  3. FOLIC ACID. [Concomitant]
     Active Substance: FOLIC ACID
     Indication: DRUG THERAPY

REACTIONS (8)
  - Joint swelling [Recovering/Resolving]
  - Insomnia [Not Recovered/Not Resolved]
  - Injection site bruising [Recovering/Resolving]
  - Wrong technique in drug usage process [Recovered/Resolved]
  - Injection site pain [Not Recovered/Not Resolved]
  - Arthralgia [Recovering/Resolving]
  - Incorrect dose administered [Recovered/Resolved]
  - Nausea [Recovered/Resolved]

NARRATIVE: CASE EVENT DATE: 201403
